FAERS Safety Report 9330190 (Version 2)
Quarter: 2013Q4

REPORT INFORMATION
  Report Type: Spontaneous
  Country: US (occurrence: US)
  Receive Date: 20130604
  Receipt Date: 20131119
  Transmission Date: 20140711
  Serious: Yes (Hospitalization)
  Sender: FDA-Public Use
  Company Number: US-B.I. PHARMACEUTICALS,INC./RIDGEFIELD-2013-BI-15453BP

PATIENT
  Age: 69 Year
  Sex: Female
  Weight: 111.13 kg

DRUGS (17)
  1. PRADAXA [Suspect]
     Indication: ANTICOAGULANT THERAPY
     Dosage: 300 MG
     Dates: start: 20110927, end: 20120130
  2. PRADAXA [Suspect]
     Indication: ATRIAL FIBRILLATION
  3. ALLOPURINOL [Concomitant]
     Dates: start: 2010
  4. BENICAR [Concomitant]
     Dates: start: 2003
  5. LASIX [Concomitant]
     Dates: start: 2003
  6. METOPROLOL [Concomitant]
     Dates: start: 2007
  7. VITAMIN D [Concomitant]
     Dates: start: 2010
  8. SIMVASTATIN [Concomitant]
     Dates: start: 2005
  9. POTASSIUM CHLORIDE [Concomitant]
     Dates: start: 2003
  10. GLUCOTROL [Concomitant]
     Dates: start: 2003
  11. HUMALOG [Concomitant]
     Dates: start: 2003
  12. ASPIRIN [Concomitant]
  13. GLIPIZIDE [Concomitant]
  14. LANTUS [Concomitant]
  15. ZOCOR [Concomitant]
  16. OCUVITE [Concomitant]
  17. IRON [Concomitant]

REACTIONS (2)
  - Gastrointestinal haemorrhage [Recovered/Resolved]
  - Haemorrhagic anaemia [Unknown]
